FAERS Safety Report 7222500-1 (Version None)
Quarter: 2011Q1

REPORT INFORMATION
  Report Type: 
  Country: None (occurrence: None)
  Receive Date: 20110112
  Receipt Date: 20110110
  Transmission Date: 20110831
  Serious: Yes (Other)
  Sender: FDA-Public Use
  Company Number: DE-ABBOTT-11P-062-0696027-00

PATIENT
  Sex: Male
  Weight: 76 kg

DRUGS (2)
  1. DEPOT INSULINE [Suspect]
     Indication: TYPE 2 DIABETES MELLITUS
  2. HUMIRA [Suspect]
     Indication: RHEUMATOID ARTHRITIS
     Route: 058
     Dates: start: 20101001, end: 20101221

REACTIONS (2)
  - LICHENOID KERATOSIS [None]
  - RASH ERYTHEMATOUS [None]
